FAERS Safety Report 23789697 (Version 1)
Quarter: 2024Q2

REPORT INFORMATION
  Report Type: Spontaneous
  Country: US (occurrence: None)
  Receive Date: 20240426
  Receipt Date: 20240426
  Transmission Date: 20240716
  Serious: Yes (Hospitalization)
  Sender: FDA-Public Use
  Company Number: None

PATIENT
  Age: 31 Year
  Sex: Male
  Weight: 89 kg

DRUGS (2)
  1. CLOZAPINE [Suspect]
     Active Substance: CLOZAPINE
     Indication: Schizoaffective disorder
     Dosage: 200 MG HS PO
     Route: 048
     Dates: start: 20220427
  2. DIVALPROEX SODIUM ER [Suspect]
     Active Substance: DIVALPROEX SODIUM
     Dosage: 750 MG HS PO?
     Route: 048
     Dates: start: 20221109, end: 20230517

REACTIONS (4)
  - Neutropenia [None]
  - COVID-19 [None]
  - Antipsychotic drug level increased [None]
  - Product dose omission issue [None]

NARRATIVE: CASE EVENT DATE: 20230521
